FAERS Safety Report 4721226-3 (Version None)
Quarter: 2005Q3

REPORT INFORMATION
  Report Type: 
  Country: None (occurrence: None)
  Receive Date: 20050720
  Receipt Date: 20050707
  Transmission Date: 20060218
  Serious: Yes (Hospitalization)
  Sender: FDA-Public Use
  Company Number: 2005099010

PATIENT
  Age: 29 Year
  Sex: Male

DRUGS (4)
  1. HALCION [Suspect]
     Indication: INSOMNIA
     Dosage: ORAL
     Route: 048
  2. DEPAKENE [Concomitant]
  3. ROHYPNOL (FLUNITRAZEPAM) [Concomitant]
  4. ANTI-PARKINSON AGENTS [Concomitant]

REACTIONS (1)
  - DRUG ERUPTION [None]
